FAERS Safety Report 7612018-6 (Version None)
Quarter: 2011Q3

REPORT INFORMATION
  Report Type: 
  Country: None (occurrence: None)
  Receive Date: 20110715
  Receipt Date: 20110702
  Transmission Date: 20111222
  Serious: Yes (Hospitalization)
  Sender: FDA-Public Use
  Company Number: US-AMGEN-USASP2011030798

PATIENT
  Age: 60 Year
  Sex: Male

DRUGS (1)
  1. ENBREL [Suspect]
     Indication: PSORIASIS
     Dosage: 50 MG, QWK
     Dates: start: 20101031

REACTIONS (6)
  - PAIN [None]
  - PSORIASIS [None]
  - NEPHROLITHIASIS [None]
  - INJECTION SITE PAIN [None]
  - CORONARY ARTERY OCCLUSION [None]
  - NAUSEA [None]
